FAERS Safety Report 12609382 (Version 2)
Quarter: 2016Q3

REPORT INFORMATION
  Report Type: Spontaneous
  Country: FR (occurrence: FR)
  Receive Date: 20160801
  Receipt Date: 20160819
  Transmission Date: 20161109
  Serious: Yes (Hospitalization)
  Sender: FDA-Public Use
  Company Number: FR-ROCHE-1804118

PATIENT
  Age: 60 Year
  Sex: Male

DRUGS (10)
  1. IFOSFAMIDE EG [Suspect]
     Active Substance: IFOSFAMIDE
     Indication: LYMPHOMA
     Route: 042
     Dates: start: 20160706, end: 20160706
  2. CYCLOPHOSPHAMIDE. [Concomitant]
     Active Substance: CYCLOPHOSPHAMIDE
  3. PREDNISOLONE. [Concomitant]
     Active Substance: PREDNISOLONE
  4. FLUDARABINE [Concomitant]
     Active Substance: FLUDARABINE PHOSPHATE
  5. DOXORUBICIN HYDROCHLORIDE. [Concomitant]
     Active Substance: DOXORUBICIN HYDROCHLORIDE
  6. MABTHERA [Suspect]
     Active Substance: RITUXIMAB
     Route: 042
     Dates: start: 20160706, end: 20160706
  7. ETOPOSIDE MYLAN [Suspect]
     Active Substance: ETOPOSIDE
     Indication: LYMPHOMA
     Route: 042
     Dates: start: 20160706, end: 20160706
  8. CARBOPLATIN HOSPIRA [Suspect]
     Active Substance: CARBOPLATIN
     Indication: LYMPHOMA
     Route: 042
     Dates: start: 20160706, end: 20160706
  9. MABTHERA [Suspect]
     Active Substance: RITUXIMAB
     Indication: LYMPHOMA
     Route: 042
  10. VINCRISTINE [Concomitant]
     Active Substance: VINCRISTINE

REACTIONS (1)
  - Encephalopathy [Recovered/Resolved]

NARRATIVE: CASE EVENT DATE: 20160708
